FAERS Safety Report 15822787 (Version 5)
Quarter: 2023Q2

REPORT INFORMATION
  Report Type: Spontaneous
  Country: FR (occurrence: FR)
  Receive Date: 20190114
  Receipt Date: 20230616
  Transmission Date: 20230722
  Serious: Yes (Hospitalization, Disabling, Other)
  Sender: FDA-Public Use
  Company Number: FR-ABBVIE-19K-056-2622070-00

PATIENT
  Sex: Male
  Weight: 96 kg

DRUGS (2)
  1. HUMIRA [Suspect]
     Active Substance: ADALIMUMAB
     Indication: Rheumatoid arthritis
     Route: 058
     Dates: start: 201706, end: 201812
  2. METHOTREXATE [Concomitant]
     Active Substance: METHOTREXATE
     Indication: Rheumatoid arthritis

REACTIONS (17)
  - Polyneuropathy [Not Recovered/Not Resolved]
  - Vitamin B6 deficiency [Unknown]
  - Hereditary motor and sensory neuropathy [Unknown]
  - Benign neoplasm [Unknown]
  - Neuropathy peripheral [Not Recovered/Not Resolved]
  - Vitamin D deficiency [Unknown]
  - Ataxia [Unknown]
  - Brachial plexopathy [Unknown]
  - Glucose tolerance impaired [Unknown]
  - Balance disorder [Not Recovered/Not Resolved]
  - Hypoaesthesia [Unknown]
  - Erectile dysfunction [Unknown]
  - Hyperhidrosis [Unknown]
  - Muscle contractions involuntary [Unknown]
  - Neutrophilia [Unknown]
  - Hyperglycaemia [Unknown]
  - Paraesthesia [Unknown]

NARRATIVE: CASE EVENT DATE: 20180101
